FAERS Safety Report 8721117 (Version 3)
Quarter: 2014Q1

REPORT INFORMATION
  Report Type: Spontaneous
  Country: US (occurrence: US)
  Receive Date: 20120813
  Receipt Date: 20140117
  Transmission Date: 20141002
  Serious: No
  Sender: FDA-Public Use
  Company Number: US-ASTRAZENECA-2012SE55036

PATIENT
  Age: 59 Year
  Sex: Female
  Weight: 77.1 kg

DRUGS (8)
  1. NEXIUM [Suspect]
     Indication: GASTROOESOPHAGEAL REFLUX DISEASE
     Route: 048
  2. NEXIUM [Suspect]
     Indication: GASTROOESOPHAGEAL REFLUX DISEASE
     Route: 048
     Dates: start: 201303, end: 201312
  3. CRESTOR [Suspect]
     Indication: BLOOD CHOLESTEROL ABNORMAL
     Route: 048
  4. METOPROLOL [Concomitant]
     Indication: BLOOD PRESSURE ABNORMAL
  5. BACLOFEN [Concomitant]
     Indication: MUSCLE SPASMS
  6. INFUSION [Concomitant]
     Indication: MULTIPLE SCLEROSIS
  7. VITAMINS [Concomitant]
     Indication: VITAMIN SUPPLEMENTATION
  8. XANAX [Concomitant]

REACTIONS (3)
  - Gastrooesophageal reflux disease [Unknown]
  - Feeling abnormal [Unknown]
  - Drug dose omission [Not Recovered/Not Resolved]
